FAERS Safety Report 17086643 (Version 1)
Quarter: 2019Q4

REPORT INFORMATION
  Report Type: Spontaneous
  Country: JP (occurrence: JP)
  Receive Date: 20191128
  Receipt Date: 20191128
  Transmission Date: 20200122
  Serious: Yes (Other)
  Sender: FDA-Public Use
  Company Number: JP-TEVA-2019-JP-1144602

PATIENT
  Age: 7 Decade
  Sex: Female

DRUGS (2)
  1. DOPS [Concomitant]
     Active Substance: DROXIDOPA
     Route: 065
  2. AZILECT [Suspect]
     Active Substance: RASAGILINE MESYLATE
     Indication: PARKINSON^S DISEASE
     Dosage: 1 MILLIGRAM DAILY;
     Route: 048

REACTIONS (2)
  - Hallucination, visual [Unknown]
  - Dementia with Lewy bodies [Unknown]
